FAERS Safety Report 12498900 (Version 1)
Quarter: 2016Q2

REPORT INFORMATION
  Report Type: Spontaneous
  Country: US (occurrence: US)
  Receive Date: 20160627
  Receipt Date: 20160627
  Transmission Date: 20160815
  Serious: No
  Sender: FDA-Public Use
  Company Number: US-TEVA-650170USA

PATIENT
  Sex: Female

DRUGS (1)
  1. ANASTROZOLE. [Suspect]
     Active Substance: ANASTROZOLE
     Dosage: 1 MILLIGRAM DAILY;
     Route: 048

REACTIONS (4)
  - Diarrhoea [Recovered/Resolved]
  - Musculoskeletal disorder [Unknown]
  - Hot flush [Unknown]
  - Fatigue [Recovering/Resolving]
